FAERS Safety Report 9482760 (Version 1)
Quarter: 2013Q3

REPORT INFORMATION
  Report Type: Spontaneous
  Country: US (occurrence: US)
  Receive Date: 20130828
  Receipt Date: 20130828
  Transmission Date: 20140515
  Serious: Yes (Other)
  Sender: FDA-Public Use
  Company Number: US-ASTRAZENECA-2013SE64677

PATIENT
  Age: 54 Year
  Sex: Male
  Weight: 85.3 kg

DRUGS (10)
  1. NEXIUM [Suspect]
     Indication: GASTROOESOPHAGEAL REFLUX DISEASE
     Route: 048
     Dates: start: 2005, end: 2012
  2. CRESTOR [Suspect]
     Indication: BLOOD CHOLESTEROL ABNORMAL
     Dosage: DAILY
     Route: 048
     Dates: start: 2008, end: 2008
  3. DILTIAZEM [Concomitant]
     Indication: BLOOD PRESSURE
     Route: 048
     Dates: start: 2012
  4. DILTIAZEM [Concomitant]
     Indication: CARDIAC DISORDER
     Route: 048
     Dates: start: 2012
  5. WARFARIN [Concomitant]
     Indication: PROPHYLAXIS
     Route: 048
     Dates: start: 2012
  6. METFORMIN [Concomitant]
     Indication: DIABETES MELLITUS
     Route: 048
     Dates: start: 2007
  7. LIPITOR [Concomitant]
     Indication: BLOOD CHOLESTEROL ABNORMAL
     Route: 048
     Dates: start: 2007, end: 201308
  8. OXYCODONE [Concomitant]
     Indication: PAIN
     Dosage: 10/325MG 1/2 TABLET EVERY 2 H
     Route: 048
     Dates: start: 2010
  9. ALPRAZOLAM [Concomitant]
     Indication: ANXIETY
     Route: 048
     Dates: start: 201303
  10. LORAZEPAM [Concomitant]
     Indication: ANXIETY
     Route: 048
     Dates: start: 2010, end: 201303

REACTIONS (10)
  - Gastrooesophageal reflux disease [Not Recovered/Not Resolved]
  - Burning sensation [Not Recovered/Not Resolved]
  - Dyspnoea [Not Recovered/Not Resolved]
  - Choking [Not Recovered/Not Resolved]
  - Atrial fibrillation [Unknown]
  - Diabetes mellitus [Unknown]
  - Nerve compression [Unknown]
  - Pain [Not Recovered/Not Resolved]
  - Seasonal allergy [Unknown]
  - Intentional drug misuse [Unknown]
